FAERS Safety Report 4918361-3 (Version None)
Quarter: 2006Q1

REPORT INFORMATION
  Report Type: 
  Country: None (occurrence: None)
  Receive Date: 20060214
  Receipt Date: 20060123
  Transmission Date: 20060701
  Serious: Yes (Other)
  Sender: FDA-Public Use
  Company Number: ES200601004164

PATIENT
  Age: 57 Year
  Sex: Female
  Weight: 50 kg

DRUGS (2)
  1. RALOXIFENE HCL [Suspect]
     Dosage: 60 MG DAILY (1/D), ORAL
     Route: 048
     Dates: start: 20011126, end: 20051001
  2. CALCIUM SANDOZ FORTE D (CALCIUM CARBONATE, CLACIUM GLUCEPTATE, COLECAL [Concomitant]

REACTIONS (1)
  - TRANSIENT ISCHAEMIC ATTACK [None]
